FAERS Safety Report 5777315-8 (Version None)
Quarter: 2008Q2

REPORT INFORMATION
  Report Type: 
  Country: None (occurrence: None)
  Receive Date: 20080618
  Receipt Date: 20080606
  Transmission Date: 20081010
  Serious: Yes (Other)
  Sender: FDA-Public Use
  Company Number: US-BAYER-200812342BCC

PATIENT
  Age: 65 Year
  Sex: Female
  Weight: 61 kg

DRUGS (10)
  1. ASPIRIN [Suspect]
     Indication: ISCHAEMIC HEART DISEASE PROPHYLAXIS
     Dosage: TOTAL DAILY DOSE: 81 MG  UNIT DOSE: 81 MG
     Route: 048
     Dates: start: 20080101
  2. ASPIRIN [Suspect]
     Dosage: TOTAL DAILY DOSE: 243 MG  UNIT DOSE: 81 MG
     Route: 048
     Dates: start: 20080101
  3. NITROGLYCERIN [Concomitant]
     Route: 061
  4. METOPROLOL [Concomitant]
  5. ISOSORBIDE DINITRATE [Concomitant]
  6. PLAVIX [Concomitant]
  7. LISINOPRIL [Concomitant]
  8. CILOSTAZOL [Concomitant]
  9. SIMVASTATIN [Concomitant]
  10. FISH OIL [Concomitant]

REACTIONS (2)
  - COLITIS COLLAGENOUS [None]
  - DIARRHOEA [None]
